FAERS Safety Report 24728794 (Version 1)
Quarter: 2024Q4

REPORT INFORMATION
  Report Type: Spontaneous
  Country: CN (occurrence: CN)
  Receive Date: 20241212
  Receipt Date: 20241212
  Transmission Date: 20250114
  Serious: Yes (Hospitalization, Other)
  Sender: AMGEN
  Company Number: CN-AMGEN-CHNSP2024221830

PATIENT
  Age: 58 Year
  Sex: Female
  Weight: 88 kg

DRUGS (3)
  1. XGEVA [Suspect]
     Active Substance: DENOSUMAB
     Indication: Breast cancer
     Dosage: 120 MILLIGRAM (FREQUENCY: 1, DURATION OF REGIMEN: 1)
     Route: 040
     Dates: start: 20241024, end: 20241024
  2. XGEVA [Suspect]
     Active Substance: DENOSUMAB
     Dosage: 120 MILLIGRAM (FREQUENCY: 1, DURATION OF REGIMEN: 1)
     Route: 040
     Dates: start: 20241126, end: 20241126
  3. SODIUM CHLORIDE [Concomitant]
     Active Substance: SODIUM CHLORIDE
     Dosage: 100 MILLILITER (FREQUENCY 1, REGIMEN 1)
     Route: 040
     Dates: start: 20241126, end: 20241126

REACTIONS (2)
  - Myelosuppression [Unknown]
  - Hepatic function abnormal [Unknown]

NARRATIVE: CASE EVENT DATE: 20241030
